FAERS Safety Report 13814781 (Version 1)
Quarter: 2017Q3

REPORT INFORMATION
  Report Type: Spontaneous
  Country: CN (occurrence: CN)
  Receive Date: 20170731
  Receipt Date: 20170731
  Transmission Date: 20171127
  Serious: Yes (Other)
  Sender: FDA-Public Use
  Company Number: CN-ASTELLAS-2017US029477

PATIENT
  Age: 52 Year
  Sex: Male

DRUGS (2)
  1. LAMIVUDINE. [Concomitant]
     Active Substance: LAMIVUDINE
     Indication: PRODUCT USED FOR UNKNOWN INDICATION
     Dosage: UNK UNK, UNKNOWN FREQ.
     Route: 065
  2. TACROLIMUS. [Suspect]
     Active Substance: TACROLIMUS
     Indication: LIVER TRANSPLANT
     Dosage: UNK UNK, UNKNOWN FREQ.
     Route: 065

REACTIONS (10)
  - Varices oesophageal [Unknown]
  - Intestinal varices [Recovering/Resolving]
  - Portal vein cavernous transformation [Unknown]
  - Vascular graft [Unknown]
  - Hypersplenism [Recovering/Resolving]
  - Hepatic function abnormal [Unknown]
  - Portal vein occlusion [Unknown]
  - Gastrointestinal haemorrhage [Unknown]
  - Portal vein thrombosis [Unknown]
  - Portal hypertension [Unknown]
